FAERS Safety Report 8298878-7 (Version None)
Quarter: 2012Q2

REPORT INFORMATION
  Report Type: 
  Country: None (occurrence: None)
  Receive Date: 20120419
  Receipt Date: 20120409
  Transmission Date: 20120825
  Serious: Yes (Hospitalization, Other)
  Sender: FDA-Public Use
  Company Number: US-BAYER-201010385NA

PATIENT
  Age: 41 Year
  Sex: Female
  Weight: 86.168 kg

DRUGS (10)
  1. YAZ [Suspect]
     Indication: UTERINE HAEMORRHAGE
     Route: 048
     Dates: start: 20071001
  2. IBUPROFEN [Concomitant]
     Dosage: UNK
     Route: 048
     Dates: start: 20070101
  3. CHLOREX-A [CHLORPHENAM MAL,PHENYLEPHR HCL,PHENYLTOLOXAM CITR] [Concomitant]
     Dosage: 4-40-20
     Route: 048
     Dates: start: 20070425, end: 20070914
  4. FLUTICASONE FUROATE [Concomitant]
     Dosage: 50 ?G, UNK
     Route: 048
     Dates: start: 20070425, end: 20070914
  5. MICRONOR [Concomitant]
     Dosage: UNK
     Dates: start: 20080102
  6. FLUTICASONE FUROATE [Concomitant]
     Dosage: 50 MICROGRAMS
     Route: 048
     Dates: start: 20070425, end: 20070914
  7. YAZ [Suspect]
  8. NEOMYCIN W/POLYMYCIN B/HYDROCORTISONE [Concomitant]
     Dosage: 1 %, UNK
     Dates: start: 20070914
  9. PROTONIX [Concomitant]
     Indication: GASTROOESOPHAGEAL REFLUX DISEASE
     Dosage: 40 MG, UNK
     Route: 048
     Dates: start: 20071201
  10. CHLOREX-A [CHLORPHENAM MAL,PHENYLEPHR HCL,PHENYLTOLOXAM CITR] [Concomitant]
     Dosage: 4-40-20
     Route: 048
     Dates: start: 20070425, end: 20070914

REACTIONS (11)
  - NAUSEA [None]
  - PAIN [None]
  - PLEURITIC PAIN [None]
  - COUGH [None]
  - ANAEMIA [None]
  - GASTROOESOPHAGEAL REFLUX DISEASE [None]
  - BACK PAIN [None]
  - DYSPNOEA [None]
  - PULMONARY EMBOLISM [None]
  - BUNDLE BRANCH BLOCK RIGHT [None]
  - ABDOMINAL DISCOMFORT [None]
